FAERS Safety Report 14761949 (Version 1)
Quarter: 2018Q2

REPORT INFORMATION
  Report Type: Spontaneous
  Country: SE (occurrence: SE)
  Receive Date: 20180416
  Receipt Date: 20180416
  Transmission Date: 20180711
  Serious: Yes (Death)
  Sender: FDA-Public Use
  Company Number: SE-TEVA-2018-SE-881887

PATIENT
  Age: 93 Year
  Sex: Female

DRUGS (5)
  1. NAPROXEN. [Suspect]
     Active Substance: NAPROXEN
     Indication: PAIN
     Dosage: 500 MG 1 ST VB, MAX 2/DAG
     Route: 048
     Dates: start: 20171101, end: 20171118
  2. ALVEDON 500 MG [Concomitant]
     Dates: start: 20171101, end: 20171118
  3. AMLODIPIN 5 MG [Concomitant]
  4. NORMORIX MITE 2,5/25 MG [Concomitant]
     Route: 065
  5. ZOLPIDEM [Concomitant]
     Active Substance: ZOLPIDEM\ZOLPIDEM TARTRATE

REACTIONS (1)
  - Gastric ulcer perforation [Fatal]

NARRATIVE: CASE EVENT DATE: 20171118
